FAERS Safety Report 4659228-8 (Version None)
Quarter: 2005Q2

REPORT INFORMATION
  Report Type: 
  Country: None (occurrence: None)
  Receive Date: 20050510
  Receipt Date: 20050412
  Transmission Date: 20051028
  Serious: Yes (Hospitalization)
  Sender: FDA-Public Use
  Company Number: 2005069976

PATIENT
  Age: 79 Year
  Sex: Female

DRUGS (3)
  1. NORVASC [Suspect]
     Indication: ILL-DEFINED DISORDER
     Dosage: 10 MG (10 MG, 1 IN 1 D), ORAL
     Route: 048
     Dates: start: 20050402, end: 20050409
  2. PERINDOPRIL ERBUMINE                   (PERINDOPRIL ERBUMINE) [Suspect]
     Indication: ILL-DEFINED DISORDER
     Dosage: 4 MG, ORAL
     Route: 048
     Dates: start: 20050402, end: 20050409
  3. ESOMEPRAZOLE                    (ESOMEPRAZOLE) [Suspect]
     Indication: ILL-DEFINED DISORDER
     Dosage: 20 MG, ORAL
     Route: 048
     Dates: start: 20050303, end: 20050409

REACTIONS (1)
  - DERMATITIS EXFOLIATIVE [None]
